FAERS Safety Report 12363275 (Version 2)
Quarter: 2020Q1

REPORT INFORMATION
  Report Type: Spontaneous
  Country: US (occurrence: US)
  Receive Date: 20160512
  Receipt Date: 20200110
  Transmission Date: 20200409
  Serious: No
  Sender: FDA-Public Use
  Company Number: US-UCBSA-2015007510

PATIENT
  Age: 29 Year
  Sex: Female

DRUGS (1)
  1. CIMZIA [Suspect]
     Active Substance: CERTOLIZUMAB PEGOL
     Indication: COLITIS ULCERATIVE
     Dosage: 400 MG, MONTHLY (QM); STRENGTH: 200 MG
     Route: 058
     Dates: start: 20131028

REACTIONS (2)
  - Injection site discolouration [Unknown]
  - Contusion [Unknown]

NARRATIVE: CASE EVENT DATE: 201408
